FAERS Safety Report 20623775 (Version 1)
Quarter: 2022Q1

REPORT INFORMATION
  Report Type: Spontaneous
  Country: US (occurrence: US)
  Receive Date: 20220322
  Receipt Date: 20220322
  Transmission Date: 20220423
  Serious: Yes (Other)
  Sender: FDA-Public Use
  Company Number: NL-Accord-256623

PATIENT
  Age: 61 Year
  Sex: Male

DRUGS (4)
  1. DAPTOMYCIN [Suspect]
     Active Substance: DAPTOMYCIN
     Indication: Pneumonia staphylococcal
  2. DAPTOMYCIN [Suspect]
     Active Substance: DAPTOMYCIN
     Indication: Staphylococcal bacteraemia
  3. CEFTAROLINE [Concomitant]
     Active Substance: CEFTAROLINE
     Indication: Pneumonia staphylococcal
     Dosage: UNK
  4. CEFTAROLINE [Concomitant]
     Active Substance: CEFTAROLINE
     Indication: Staphylococcal bacteraemia

REACTIONS (1)
  - Eosinophilic pneumonia [Unknown]
